FAERS Safety Report 18917319 (Version 2)
Quarter: 2021Q1

REPORT INFORMATION
  Report Type: Report from Study
  Country: US (occurrence: US)
  Receive Date: 20210219
  Receipt Date: 20210326
  Transmission Date: 20210420
  Serious: Yes (Hospitalization)
  Sender: FDA-Public Use
  Company Number: US-PRINSTON PHARMACEUTICAL INC.-2021PRN00058

PATIENT
  Age: 62 Year
  Sex: Male

DRUGS (12)
  1. OMACOR [Concomitant]
     Active Substance: OMEGA-3-ACID ETHYL ESTERS
  2. AMLODIPINE [Concomitant]
     Active Substance: AMLODIPINE BESYLATE
  3. IRBESARTAN. [Suspect]
     Active Substance: IRBESARTAN
     Dosage: 150 MG, 1X/DAY
     Dates: start: 20200109
  4. SPARSENTAN. [Suspect]
     Active Substance: SPARSENTAN
     Dosage: 400 MG, 1X/DAY
     Dates: start: 20191003, end: 20191216
  5. SPARSENTAN. [Suspect]
     Active Substance: SPARSENTAN
     Dosage: 200 MG, 1X/DAY
     Dates: start: 20200109
  6. IRBESARTAN. [Suspect]
     Active Substance: IRBESARTAN
     Dosage: 300 MG, 1X/DAY
     Dates: start: 20191003, end: 20191216
  7. FUROSEMIDE. [Concomitant]
     Active Substance: FUROSEMIDE
  8. DOXAZOSIN [Concomitant]
     Active Substance: DOXAZOSIN MESYLATE
  9. IRBESARTAN. [Suspect]
     Active Substance: IRBESARTAN
     Indication: IGA NEPHROPATHY
     Dosage: 150 MG, 1X/DAY
     Dates: start: 20190924, end: 20191002
  10. SPARSENTAN. [Suspect]
     Active Substance: SPARSENTAN
     Indication: IGA NEPHROPATHY
     Dosage: 200 MG, 1X/DAY
     Dates: start: 20190924, end: 20191002
  11. ATORVASTATIN [Concomitant]
     Active Substance: ATORVASTATIN
  12. BISOPROLOL [Concomitant]
     Active Substance: BISOPROLOL

REACTIONS (10)
  - Pneumonia [Recovered/Resolved]
  - Acute kidney injury [Recovered/Resolved]
  - Vertigo positional [Unknown]
  - Vertigo [Recovered/Resolved]
  - Hypertension [None]
  - Hypotension [Unknown]
  - Viral infection [Unknown]
  - Muscle fatigue [Recovered/Resolved]
  - Peripheral swelling [Recovered/Resolved]
  - Anaemia [None]

NARRATIVE: CASE EVENT DATE: 2019
